FAERS Safety Report 13697388 (Version 1)
Quarter: 2017Q2

REPORT INFORMATION
  Report Type: Spontaneous
  Country: US (occurrence: US)
  Receive Date: 20170628
  Receipt Date: 20170628
  Transmission Date: 20170830
  Serious: Yes (Hospitalization, Other)
  Sender: FDA-Public Use
  Company Number: None

PATIENT
  Age: 61 Year
  Sex: Male
  Weight: 155.13 kg

DRUGS (24)
  1. NTG [Concomitant]
     Active Substance: NITROGLYCERIN
  2. RANEXA [Concomitant]
     Active Substance: RANOLAZINE
  3. TRICOR [Concomitant]
     Active Substance: FENOFIBRATE
  4. ASA [Concomitant]
     Active Substance: ASPIRIN
  5. VITAMIN C [Concomitant]
     Active Substance: ASCORBIC ACID
  6. ALTACE [Concomitant]
     Active Substance: RAMIPRIL
  7. CRESTOR [Concomitant]
     Active Substance: ROSUVASTATIN CALCIUM
  8. CYMBALTA [Concomitant]
     Active Substance: DULOXETINE HYDROCHLORIDE
  9. FERROUS SULFATE. [Concomitant]
     Active Substance: FERROUS SULFATE
  10. DEMADEX [Concomitant]
     Active Substance: TORSEMIDE
  11. LANTUS [Concomitant]
     Active Substance: INSULIN GLARGINE
  12. VITAMIN D3 [Concomitant]
     Active Substance: CHOLECALCIFEROL
  13. NOVOLOG [Concomitant]
     Active Substance: INSULIN ASPART
  14. EC [Concomitant]
  15. COREG [Concomitant]
     Active Substance: CARVEDILOL
  16. PROTONIX [Concomitant]
     Active Substance: PANTOPRAZOLE SODIUM
  17. ALDACTONE [Concomitant]
     Active Substance: SPIRONOLACTONE
  18. NORCO [Concomitant]
     Active Substance: ACETAMINOPHEN\HYDROCODONE BITARTRATE
  19. ZINC. [Concomitant]
     Active Substance: ZINC
  20. GABAPENTIN. [Suspect]
     Active Substance: GABAPENTIN
     Indication: DIABETIC NEUROPATHY
     Dosage: ?          QUANTITY:~ GET/(J. AILLCFI? #65019;?
     Route: 048
     Dates: start: 20140220, end: 20170531
  21. WELLBUTRIN XL [Concomitant]
     Active Substance: BUPROPION HYDROCHLORIDE
  22. FISH OIL [Concomitant]
     Active Substance: FISH OIL
  23. IMDUR [Concomitant]
     Active Substance: ISOSORBIDE MONONITRATE
  24. PLAVIX [Concomitant]
     Active Substance: CLOPIDOGREL BISULFATE

REACTIONS (13)
  - Coordination abnormal [None]
  - Ankle fracture [None]
  - Renal failure [None]
  - Tibia fracture [None]
  - Gait disturbance [None]
  - Weight increased [None]
  - Respiratory failure [None]
  - Fibula fracture [None]
  - Fall [None]
  - Dyskinesia [None]
  - Pathological fracture [None]
  - Dysphagia [None]
  - Depression [None]

NARRATIVE: CASE EVENT DATE: 20160916
